FAERS Safety Report 20520341 (Version 2)
Quarter: 2022Q1

REPORT INFORMATION
  Report Type: Spontaneous
  Country: JP (occurrence: JP)
  Receive Date: 20220225
  Receipt Date: 20220322
  Transmission Date: 20220423
  Serious: Yes (Other)
  Sender: FDA-Public Use
  Company Number: JP-NAPPMUNDI-GBR-2022-0095164

PATIENT
  Age: 78 Year
  Sex: Female

DRUGS (15)
  1. OXYCONTIN [Suspect]
     Active Substance: OXYCODONE HYDROCHLORIDE
     Indication: Product used for unknown indication
     Dosage: 100 MG, DAILY
     Route: 065
  2. OXYCONTIN [Suspect]
     Active Substance: OXYCODONE HYDROCHLORIDE
     Indication: Cancer pain
  3. OXYCODONE HYDROCHLORIDE [Suspect]
     Active Substance: OXYCODONE HYDROCHLORIDE
     Indication: Cancer pain
     Dosage: 100 MG, DAILY
     Route: 048
  4. SYMPROIC [Suspect]
     Active Substance: NALDEMEDINE
     Indication: Product used for unknown indication
     Dosage: UNK
     Route: 048
  5. SYMPROIC [Suspect]
     Active Substance: NALDEMEDINE
     Indication: Constipation
     Dosage: 0.2 MG, DAILY
     Route: 048
  6. METHADONE HYDROCHLORIDE [Suspect]
     Active Substance: METHADONE HYDROCHLORIDE
     Indication: Product used for unknown indication
     Dosage: 5 MG, DAILY
     Route: 065
  7. METHADONE HYDROCHLORIDE [Suspect]
     Active Substance: METHADONE HYDROCHLORIDE
     Indication: Cancer pain
     Dosage: 5 MG, DAILY
     Route: 048
     Dates: start: 20220210, end: 20220217
  8. TRIAZOLAM [Concomitant]
     Active Substance: TRIAZOLAM
     Indication: Product used for unknown indication
     Dosage: 0.125 GRAM, DAILY
     Route: 065
  9. TRIAZOLAM [Concomitant]
     Active Substance: TRIAZOLAM
     Dosage: 0.125 GRAM, DAILY
     Route: 065
  10. LYRICA [Concomitant]
     Active Substance: PREGABALIN
     Indication: Product used for unknown indication
     Dosage: UNK
     Route: 065
  11. LYRICA [Concomitant]
     Active Substance: PREGABALIN
     Indication: Analgesic therapy
     Dosage: UNK
     Route: 065
  12. MOVICOL                            /06401201/ [Concomitant]
     Indication: Product used for unknown indication
     Dosage: UNK, (ONCE IN 3 DAYS)
  13. MOVICOL                            /06401201/ [Concomitant]
     Dosage: UNK UNK, DAILY
     Route: 048
  14. MOVICOL                            /06401201/ [Concomitant]
     Dosage: UNK, (ONCE IN 3 DAYS)
  15. MOVICOL                            /06401201/ [Concomitant]
     Dosage: UNK UNK, DAILY
     Route: 048

REACTIONS (3)
  - Electrocardiogram QT prolonged [Recovered/Resolved]
  - Diarrhoea [Unknown]
  - Constipation [Unknown]

NARRATIVE: CASE EVENT DATE: 20220217
